APPROVED DRUG PRODUCT: PYRIDOSTIGMINE BROMIDE
Active Ingredient: PYRIDOSTIGMINE BROMIDE
Strength: 60MG/5ML
Dosage Form/Route: SYRUP;ORAL
Application: A212702 | Product #001 | TE Code: AA
Applicant: AMNEAL PHARMACEUTICALS LLC
Approved: Jan 10, 2020 | RLD: No | RS: No | Type: RX